FAERS Safety Report 10418213 (Version 1)
Quarter: 2014Q3

REPORT INFORMATION
  Report Type: Spontaneous
  Country: US (occurrence: US)
  Receive Date: 20140829
  Receipt Date: 20140829
  Transmission Date: 20150326
  Serious: Yes (Hospitalization, Disabling, Other)
  Sender: FDA-Public Use
  Company Number: US-ASTRAZENECA-2014SE63470

PATIENT
  Age: 405 Month
  Sex: Female
  Weight: 81.6 kg

DRUGS (16)
  1. QUETIAPINE FUMERATE [Suspect]
     Active Substance: QUETIAPINE FUMARATE
     Indication: BIPOLAR I DISORDER
     Route: 048
     Dates: start: 201311
  2. PRISTIQ EXTENDED RELEASE [Concomitant]
     Active Substance: DESVENLAFAXINE SUCCINATE
     Indication: BIPOLAR DISORDER
     Dates: start: 201311
  3. HYDROCODONE [Concomitant]
     Active Substance: HYDROCODONE
     Indication: PAIN
     Dosage: 10MG 325 MG BID
     Dates: start: 2010
  4. QUETIAPINE FUMERATE [Suspect]
     Active Substance: QUETIAPINE FUMARATE
     Indication: PSYCHOTIC DISORDER
     Route: 048
     Dates: start: 201311
  5. LYRICA [Concomitant]
     Active Substance: PREGABALIN
     Indication: NECK PAIN
     Dates: start: 201404
  6. MELOXICAM. [Concomitant]
     Active Substance: MELOXICAM
     Indication: MUSCLE RELAXANT THERAPY
     Dates: start: 201301
  7. PHENERGAN [Concomitant]
     Active Substance: PROMETHAZINE HYDROCHLORIDE
     Indication: VOMITING
     Dosage: 25 MG PRN BID
  8. PHENERGAN [Concomitant]
     Active Substance: PROMETHAZINE HYDROCHLORIDE
     Indication: VOMITING
     Dosage: 25 MG PRN BID
  9. TOPROL XL [Suspect]
     Active Substance: METOPROLOL SUCCINATE
     Indication: HEART RATE INCREASED
     Route: 048
     Dates: start: 201304
  10. PRISTIQ EXTENDED RELEASE [Concomitant]
     Active Substance: DESVENLAFAXINE SUCCINATE
     Indication: PSYCHOTIC DISORDER
     Dates: start: 201311
  11. GENERIC XANAX [Concomitant]
     Dates: start: 201112, end: 201310
  12. LYRICA [Concomitant]
     Active Substance: PREGABALIN
     Indication: BACK PAIN
     Dates: start: 201404
  13. GENERIC FLEXERIL [Concomitant]
     Indication: MUSCLE SPASMS
     Dates: start: 201403
  14. QUETIAPINE FUMERATE [Suspect]
     Active Substance: QUETIAPINE FUMARATE
     Indication: BIPOLAR DISORDER
     Route: 048
     Dates: start: 201311
  15. PRISTIQ EXTENDED RELEASE [Concomitant]
     Active Substance: DESVENLAFAXINE SUCCINATE
     Indication: DEPRESSION
     Dates: start: 201311
  16. HYDROCODONE [Concomitant]
     Active Substance: HYDROCODONE
     Indication: NECK PAIN
     Dosage: 10MG 325 MG BID
     Dates: start: 2010

REACTIONS (11)
  - Pain in jaw [Unknown]
  - Spinal osteoarthritis [Unknown]
  - Sinus tachycardia [Unknown]
  - Jaw fracture [Unknown]
  - Loss of consciousness [Unknown]
  - Stress fracture [Unknown]
  - Suicidal ideation [Unknown]
  - Abdominal pain [Unknown]
  - Tooth fracture [Unknown]
  - Postural orthostatic tachycardia syndrome [Unknown]
  - Cyst [Unknown]

NARRATIVE: CASE EVENT DATE: 201306
